FAERS Safety Report 8114080-3 (Version None)
Quarter: 2012Q1

REPORT INFORMATION
  Report Type: 
  Country: None (occurrence: None)
  Receive Date: 20120203
  Receipt Date: 20110527
  Transmission Date: 20120608
  Serious: Yes (Hospitalization, Other)
  Sender: FDA-Public Use
  Company Number: PHHY2010US74508

PATIENT
  Sex: Male
  Weight: 57.6 kg

DRUGS (3)
  1. TASIGNA [Suspect]
  2. NO TREATMENT RECEIVED [Suspect]
     Dosage: 150 MG, BID
     Route: 048
     Dates: start: 20101011
  3. NO TREATMENT RECEIVED [Suspect]
     Dosage: 600 MG, UNK
     Route: 048
     Dates: start: 20100918, end: 20101006

REACTIONS (4)
  - DIARRHOEA [None]
  - NAUSEA [None]
  - MIGRAINE [None]
  - VOMITING [None]
